FAERS Safety Report 10363257 (Version 1)
Quarter: 2014Q3

REPORT INFORMATION
  Report Type: Spontaneous
  Country: US (occurrence: None)
  Receive Date: 20140804
  Receipt Date: 20140804
  Transmission Date: 20150326
  Serious: Yes (Hospitalization)
  Sender: FDA-Public Use
  Company Number: None

PATIENT
  Age: 73 Year
  Sex: Male
  Weight: 77.2 kg

DRUGS (2)
  1. LISINOPRIL. [Suspect]
     Active Substance: LISINOPRIL
     Indication: HYPERTENSION
     Dates: start: 20090801, end: 20140718
  2. NAPROXEN. [Suspect]
     Active Substance: NAPROXEN
     Indication: WRONG DRUG ADMINISTERED
     Route: 048
     Dates: start: 20140717, end: 20140718

REACTIONS (4)
  - Lip swelling [None]
  - Urticaria [None]
  - Angioedema [None]
  - Pruritus [None]

NARRATIVE: CASE EVENT DATE: 20140718
